FAERS Safety Report 19907079 (Version 1)
Quarter: 2021Q4

REPORT INFORMATION
  Report Type: Spontaneous
  Country: US (occurrence: US)
  Receive Date: 20211001
  Receipt Date: 20211001
  Transmission Date: 20220303
  Serious: Yes (Hospitalization)
  Sender: FDA-Public Use
  Company Number: 2021A747691

PATIENT
  Age: 875 Month
  Sex: Female
  Weight: 51.7 kg

DRUGS (2)
  1. BUDESONIDE\FORMOTEROL [Suspect]
     Active Substance: BUDESONIDE\FORMOTEROL
     Indication: Chronic obstructive pulmonary disease
     Dosage: TWO TIMES A DAY STARTING ABOUT 2 YEARS AGO
     Route: 055
  2. BUDESONIDE\FORMOTEROL [Suspect]
     Active Substance: BUDESONIDE\FORMOTEROL
     Indication: Chronic obstructive pulmonary disease
     Dosage: AS REQUIRED AS REQUIRED
     Route: 055
     Dates: start: 20210922

REACTIONS (16)
  - Pain [Unknown]
  - Hypokalaemia [Not Recovered/Not Resolved]
  - Small intestinal obstruction [Recovered/Resolved with Sequelae]
  - Device malfunction [Recovered/Resolved]
  - Product dose omission issue [Not Recovered/Not Resolved]
  - Nausea [Recovering/Resolving]
  - Pulmonary nodular lymphoid hyperplasia [Not Recovered/Not Resolved]
  - Weight decreased [Unknown]
  - Diarrhoea [Not Recovered/Not Resolved]
  - Eating disorder [Not Recovered/Not Resolved]
  - Finger deformity [Not Recovered/Not Resolved]
  - Vision blurred [Not Recovered/Not Resolved]
  - Medication error [Unknown]
  - Intentional device misuse [Recovered/Resolved]
  - Incorrect dose administered by device [Recovered/Resolved]
  - Intentional product use issue [Recovered/Resolved]

NARRATIVE: CASE EVENT DATE: 20210401
